FAERS Safety Report 24544535 (Version 1)
Quarter: 2024Q4

REPORT INFORMATION
  Report Type: Spontaneous
  Country: FR (occurrence: FR)
  Receive Date: 20241024
  Receipt Date: 20241024
  Transmission Date: 20250115
  Serious: Yes (Hospitalization)
  Sender: PFIZER
  Company Number: None

PATIENT
  Age: 6 Year
  Sex: Male
  Weight: 18 kg

DRUGS (5)
  1. VORICONAZOLE [Suspect]
     Active Substance: VORICONAZOLE
     Indication: Geotrichum infection
     Dosage: 8 MG/KG, EVERY 12 HOURS
     Route: 042
     Dates: start: 20240804, end: 20240808
  2. PIPERACILLIN SODIUM\TAZOBACTAM SODIUM [Suspect]
     Active Substance: PIPERACILLIN SODIUM\TAZOBACTAM SODIUM
     Indication: Peritonitis
     Dosage: UNK
     Route: 042
     Dates: start: 20240730, end: 20240806
  3. VANCOMYCIN [Suspect]
     Active Substance: VANCOMYCIN
     Indication: Peritonitis
     Dosage: UNK
     Route: 042
     Dates: start: 20240730, end: 20240813
  4. CASPOFUNGIN ACETATE [Concomitant]
     Active Substance: CASPOFUNGIN ACETATE
     Dosage: UNK
  5. AMIKACIN [Concomitant]
     Active Substance: AMIKACIN
     Dosage: UNK

REACTIONS (2)
  - Acute generalised exanthematous pustulosis [Recovering/Resolving]
  - Off label use [Unknown]

NARRATIVE: CASE EVENT DATE: 20240804
